FAERS Safety Report 10609429 (Version 2)
Quarter: 2014Q4

REPORT INFORMATION
  Report Type: Spontaneous
  Country: BE (occurrence: BE)
  Receive Date: 20141126
  Receipt Date: 20141126
  Transmission Date: 20150529
  Serious: Yes (Hospitalization)
  Sender: FDA-Public Use
  Company Number: BE-ELI_LILLY_AND_COMPANY-BE201411002241

PATIENT
  Age: 50 Year
  Sex: Female
  Weight: 67 kg

DRUGS (3)
  1. PANTOMED                           /01263204/ [Concomitant]
     Dosage: 20MG, BID
     Route: 048
  2. ASAFLOW [Concomitant]
     Active Substance: ASPIRIN
     Indication: PRODUCT USED FOR UNKNOWN INDICATION
     Dosage: 80MG, DAILY
  3. CYMBALTA [Suspect]
     Active Substance: DULOXETINE HYDROCHLORIDE
     Indication: NEURALGIA
     Dosage: 60 MG, QD
     Route: 065
     Dates: start: 20140830, end: 20140831

REACTIONS (3)
  - Off label use [Unknown]
  - Paralysis [Recovered/Resolved]
  - Anxiety [Recovered/Resolved]

NARRATIVE: CASE EVENT DATE: 20140830
